FAERS Safety Report 8074076-7 (Version None)
Quarter: 2012Q1

REPORT INFORMATION
  Report Type: 
  Country: None (occurrence: None)
  Receive Date: 20120126
  Receipt Date: 20120123
  Transmission Date: 20120608
  Serious: Yes (Death)
  Sender: FDA-Public Use
  Company Number: US-CELGENEUS-163-21880-12012170

PATIENT
  Sex: Female
  Weight: 66.284 kg

DRUGS (6)
  1. REVLIMID [Suspect]
     Dosage: 10 MILLIGRAM
     Route: 048
     Dates: start: 20111222
  2. COMPAZINE [Concomitant]
     Route: 065
  3. ONDANSETRON HCL [Concomitant]
     Route: 065
  4. KYTRIL [Concomitant]
     Route: 065
  5. PERIDEX [Concomitant]
     Route: 065
  6. PERCOCET [Concomitant]
     Route: 065

REACTIONS (1)
  - DEATH [None]
